FAERS Safety Report 26175690 (Version 1)
Quarter: 2025Q4

REPORT INFORMATION
  Report Type: Spontaneous
  Country: EU (occurrence: EU)
  Receive Date: 20251218
  Receipt Date: 20251218
  Transmission Date: 20260118
  Serious: Yes (Death)
  Sender: NOVO NORDISK
  Company Number: None

PATIENT
  Sex: Female

DRUGS (1)
  1. SEMAGLUTIDE [Suspect]
     Active Substance: SEMAGLUTIDE
     Indication: Product used for unknown indication
     Dosage: 2.5MG

REACTIONS (4)
  - Pulmonary embolism [Fatal]
  - Counterfeit product administered [Fatal]
  - Drug diversion [Fatal]
  - Product use issue [Unknown]

NARRATIVE: CASE EVENT DATE: 20251117
